FAERS Safety Report 12932403 (Version 1)
Quarter: 2016Q4

REPORT INFORMATION
  Report Type: Other
  Country: IL (occurrence: IL)
  Receive Date: 20161111
  Receipt Date: 20161111
  Transmission Date: 20170207
  Serious: Yes (Hospitalization)
  Sender: FDA-Public Use
  Company Number: IL-LUPIN PHARMACEUTICALS INC.-2016-04943

PATIENT
  Age: 40 Year
  Sex: Male

DRUGS (4)
  1. LEVETIRACETAM. [Suspect]
     Active Substance: LEVETIRACETAM
     Indication: PRODUCT USED FOR UNKNOWN INDICATION
     Route: 065
  2. TOPAMAX [Concomitant]
     Active Substance: TOPIRAMATE
     Indication: PRODUCT USED FOR UNKNOWN INDICATION
     Route: 065
  3. TAMSULOSIN [Concomitant]
     Active Substance: TAMSULOSIN
     Indication: BENIGN PROSTATIC HYPERPLASIA
  4. TAMSULOSIN [Concomitant]
     Active Substance: TAMSULOSIN
     Indication: LOWER URINARY TRACT SYMPTOMS
     Route: 065

REACTIONS (1)
  - Urinary retention [Recovered/Resolved]
